FAERS Safety Report 7542920-5 (Version None)
Quarter: 2011Q2

REPORT INFORMATION
  Report Type: 
  Country: None (occurrence: None)
  Receive Date: 20110613
  Receipt Date: 20110601
  Transmission Date: 20111010
  Serious: Yes (Hospitalization, Other)
  Sender: FDA-Public Use
  Company Number: PHFR2011GB03074

PATIENT
  Sex: Male

DRUGS (2)
  1. CLOZAPINE [Suspect]
     Indication: SCHIZOPHRENIA
     Dosage: 600 MG, UNK
     Route: 048
     Dates: start: 20050101
  2. CLOZAPINE [Suspect]
     Dosage: 600 MG, UNK
     Route: 048
     Dates: start: 20070531

REACTIONS (5)
  - LOWER RESPIRATORY TRACT INFECTION [None]
  - INTESTINAL PERFORATION [None]
  - FAECALOMA [None]
  - INTESTINAL OBSTRUCTION [None]
  - CONSTIPATION [None]
